FAERS Safety Report 12266377 (Version 1)
Quarter: 2016Q2

REPORT INFORMATION
  Report Type: Spontaneous
  Country: US (occurrence: None)
  Receive Date: 20160413
  Receipt Date: 20160413
  Transmission Date: 20160815
  Serious: Yes (Life-Threatening, Hospitalization, Other)
  Sender: FDA-Public Use
  Company Number: None

PATIENT
  Age: 27 Year
  Sex: Female
  Weight: 68.04 kg

DRUGS (1)
  1. MIRENA [Suspect]
     Active Substance: LEVONORGESTREL

REACTIONS (8)
  - Lip injury [None]
  - Fall [None]
  - Head injury [None]
  - Loss of consciousness [None]
  - Tooth fracture [None]
  - Headache [None]
  - Seizure [None]
  - Dizziness [None]

NARRATIVE: CASE EVENT DATE: 20160405
